FAERS Safety Report 22271925 (Version 1)
Quarter: 2023Q2

REPORT INFORMATION
  Report Type: Spontaneous
  Country: FR (occurrence: FR)
  Receive Date: 20230502
  Receipt Date: 20230502
  Transmission Date: 20230722
  Serious: Yes (Death, Other)
  Sender: FDA-Public Use
  Company Number: FR-INCYTE CORPORATION-2023IN002919

PATIENT

DRUGS (8)
  1. TAFASITAMAB [Suspect]
     Active Substance: TAFASITAMAB
     Indication: Diffuse large B-cell lymphoma
     Dosage: 240 MILLIGRAM
     Route: 065
     Dates: end: 20230215
  2. BISOPROLOL [Concomitant]
     Active Substance: BISOPROLOL
     Indication: Cardiac disorder
     Dosage: UNK
     Route: 065
     Dates: start: 20220905
  3. PERINDOPRIL [Concomitant]
     Active Substance: PERINDOPRIL
     Indication: Cardiac disorder
     Dosage: UNK
     Route: 065
     Dates: start: 20220905
  4. ALLOPURINOL [Concomitant]
     Active Substance: ALLOPURINOL
     Indication: Hyperuricaemia
     Dosage: UNK
     Route: 065
     Dates: start: 20220905
  5. BACTRIM [Concomitant]
     Active Substance: SULFAMETHOXAZOLE\TRIMETHOPRIM
     Indication: Antifungal prophylaxis
     Dosage: UNK
     Route: 065
     Dates: start: 20220905
  6. PRO VALACYCLOVIR [Concomitant]
     Indication: Antiviral prophylaxis
     Dosage: UNK
     Route: 065
     Dates: start: 20220905
  7. LEUCOVORIN CALCIUM [Concomitant]
     Active Substance: LEUCOVORIN CALCIUM
     Indication: Vitamin supplementation
     Dosage: UNK
     Route: 065
     Dates: start: 20220905
  8. FUROSEMIDE [Concomitant]
     Active Substance: FUROSEMIDE
     Indication: Cardiac disorder
     Dosage: UNK
     Route: 065
     Dates: start: 20220905

REACTIONS (1)
  - Death [Fatal]
